FAERS Safety Report 12383097 (Version 1)
Quarter: 2016Q2

REPORT INFORMATION
  Report Type: Spontaneous
  Country: US (occurrence: US)
  Receive Date: 20160518
  Receipt Date: 20160518
  Transmission Date: 20160815
  Serious: No
  Sender: FDA-Public Use
  Company Number: GXBR2015US002750

PATIENT
  Sex: Male
  Weight: 65.76 kg

DRUGS (3)
  1. DICLOFENAC SODIUM D.R. TABLETS USP [Suspect]
     Active Substance: DICLOFENAC SODIUM
     Indication: PRODUCT USED FOR UNKNOWN INDICATION
     Dosage: UNK DF, UNK
     Route: 065
  2. NEXIAM [Concomitant]
     Active Substance: ESOMEPRAZOLE
     Indication: ABDOMINAL DISCOMFORT
     Dosage: 40 MG, QD
     Route: 048
  3. LOSARTAN/HCTZ GT [Concomitant]
     Active Substance: HYDROCHLOROTHIAZIDE\LOSARTAN
     Indication: HYPERTENSION
     Dosage: 100MG LOSARTAN AND 12.5MG HYDROCHLOROTHIAZIDE, QD
     Route: 048

REACTIONS (2)
  - Gastritis [Unknown]
  - Dysphagia [Unknown]
